FAERS Safety Report 23912802 (Version 3)
Quarter: 2024Q3

REPORT INFORMATION
  Report Type: Report from Study
  Country: BR (occurrence: BR)
  Receive Date: 20240529
  Receipt Date: 20240827
  Transmission Date: 20241016
  Serious: Yes (Hospitalization)
  Sender: NOVO NORDISK
  Company Number: BR-NOVOPROD-1225379

PATIENT
  Age: 95 Year
  Sex: Female
  Weight: 60 kg

DRUGS (2)
  1. PREGABALIN [Concomitant]
     Active Substance: PREGABALIN
     Indication: Diabetic neuropathy
     Dosage: UNK
  2. TRESIBA [Suspect]
     Active Substance: INSULIN DEGLUDEC
     Indication: Diabetes mellitus
     Dosage: 14 IU, QD
     Dates: start: 2023

REACTIONS (4)
  - Blood pressure abnormal [Not Recovered/Not Resolved]
  - Hyperglycaemia [Not Recovered/Not Resolved]
  - Device loosening [Unknown]
  - Device issue [Unknown]

NARRATIVE: CASE EVENT DATE: 20240501
